FAERS Safety Report 23862096 (Version 1)
Quarter: 2024Q2

REPORT INFORMATION
  Report Type: Spontaneous
  Country: FR (occurrence: FR)
  Receive Date: 20240516
  Receipt Date: 20240516
  Transmission Date: 20240716
  Serious: Yes (Hospitalization)
  Sender: FDA-Public Use
  Company Number: None

PATIENT
  Age: 35 Year
  Sex: Male

DRUGS (11)
  1. CLONAZEPAM [Suspect]
     Active Substance: CLONAZEPAM
     Indication: Aggression
  2. CLONAZEPAM [Suspect]
     Active Substance: CLONAZEPAM
     Indication: Feeling of relaxation
  3. BROMAZEPAM [Suspect]
     Active Substance: BROMAZEPAM
     Dosage: (1CP MORNING AND EVENING)?DAILY DOSE: 2 DOSAGE FORM
  4. COCAINE [Suspect]
     Active Substance: COCAINE
  5. COCAETHYLENE [Suspect]
     Active Substance: COCAETHYLENE
  6. LYRICA [Suspect]
     Active Substance: PREGABALIN
     Indication: Aggression
     Dosage: 1CP MORNING AND EVENING?DAILY DOSE: 2 DOSAGE FORM
  7. LYRICA [Suspect]
     Active Substance: PREGABALIN
     Indication: Feeling of relaxation
     Dosage: 1CP MORNING AND EVENING?DAILY DOSE: 2 DOSAGE FORM
  8. ALCOHOL [Suspect]
     Active Substance: ALCOHOL
  9. INSULIN NOS [Concomitant]
     Active Substance: INSULIN NOS
  10. LEVOMEPROMAZINE [Concomitant]
     Active Substance: LEVOMEPROMAZINE
     Dosage: (1CP/D), ?DAILY DOSE: 1 DOSAGE FORM
  11. KETOCONAZOLE [Concomitant]
     Active Substance: KETOCONAZOLE

REACTIONS (3)
  - Hepatic cytolysis [Unknown]
  - Drug use disorder [Unknown]
  - Off label use [Unknown]
